FAERS Safety Report 8074429-7 (Version None)
Quarter: 2012Q1

REPORT INFORMATION
  Report Type: 
  Country: None (occurrence: None)
  Receive Date: 20120126
  Receipt Date: 20120116
  Transmission Date: 20120608
  Serious: Yes (Other)
  Sender: FDA-Public Use
  Company Number: ES-VIIV HEALTHCARE LIMITED-B0777091A

PATIENT
  Sex: Male

DRUGS (3)
  1. RITONAVIR [Concomitant]
     Indication: HIV INFECTION
     Dosage: 100MG PER DAY
     Dates: start: 20090611
  2. DARUNAVIR [Concomitant]
     Indication: HIV INFECTION
     Dosage: 900MG PER DAY
     Dates: start: 20090611
  3. MARAVIROC [Suspect]
     Indication: HIV INFECTION
     Dosage: 300MG TWICE PER DAY
     Route: 048
     Dates: start: 20090611, end: 20110213

REACTIONS (1)
  - METASTASES TO LIVER [None]
